FAERS Safety Report 25058621 (Version 1)
Quarter: 2025Q1

REPORT INFORMATION
  Report Type: Spontaneous
  Country: JP (occurrence: JP)
  Receive Date: 20250310
  Receipt Date: 20250310
  Transmission Date: 20250409
  Serious: Yes (Hospitalization)
  Sender: ELI LILLY AND COMPANY
  Company Number: JP-ELI_LILLY_AND_COMPANY-JP202412007062

PATIENT
  Age: 92 Year
  Sex: Female
  Weight: 49.8 kg

DRUGS (11)
  1. OLUMIANT [Suspect]
     Active Substance: BARICITINIB
     Indication: Rheumatoid arthritis
     Dosage: 2 MG, DAILY
     Route: 048
     Dates: start: 20240826, end: 20241123
  2. PREDONINE [Suspect]
     Active Substance: PREDNISOLONE
     Indication: Chondrocalcinosis
     Route: 048
     Dates: end: 20240519
  3. PREDONINE [Suspect]
     Active Substance: PREDNISOLONE
     Route: 048
     Dates: start: 20240520, end: 20240602
  4. PREDONINE [Suspect]
     Active Substance: PREDNISOLONE
     Dates: start: 20240603, end: 20240825
  5. PREDONINE [Suspect]
     Active Substance: PREDNISOLONE
     Dates: start: 20240826
  6. CARVEDILOL [Concomitant]
     Active Substance: CARVEDILOL
     Indication: Aortic valve incompetence
  7. METHYLCOBALAMIN [Concomitant]
     Active Substance: METHYLCOBALAMIN
     Indication: Hypoaesthesia
  8. CALONAL [Concomitant]
     Active Substance: ACETAMINOPHEN
     Indication: Pain
  9. AZOSEMIDE [Concomitant]
     Active Substance: AZOSEMIDE
     Indication: Aortic valve incompetence
     Dates: end: 20241125
  10. SPIRONOLACTONE [Concomitant]
     Active Substance: SPIRONOLACTONE
     Indication: Aortic valve incompetence
  11. VONOPRAZAN FUMARATE [Concomitant]
     Active Substance: VONOPRAZAN FUMARATE
     Indication: Gastrooesophageal reflux disease

REACTIONS (2)
  - Pyelonephritis acute [Recovered/Resolved]
  - Sepsis [Recovered/Resolved]

NARRATIVE: CASE EVENT DATE: 20241120
